FAERS Safety Report 18742018 (Version 6)
Quarter: 2021Q4

REPORT INFORMATION
  Report Type: Spontaneous
  Country: CZ (occurrence: CZ)
  Receive Date: 20210114
  Receipt Date: 20211104
  Transmission Date: 20220303
  Serious: Yes (Other)
  Sender: FDA-Public Use
  Company Number: CZ-MYLANLABS-2021M1001545

PATIENT
  Age: 67 Year
  Sex: Female

DRUGS (27)
  1. OXALIPLATIN [Suspect]
     Active Substance: OXALIPLATIN
     Indication: Colorectal cancer metastatic
     Dosage: 5 CYCLES
     Route: 042
     Dates: start: 2011
  2. OXALIPLATIN [Suspect]
     Active Substance: OXALIPLATIN
     Dosage: UNK (5 CYCLES OF MFOLFOX6, POSTOPERATIVELY)
     Route: 065
  3. OXALIPLATIN [Suspect]
     Active Substance: OXALIPLATIN
     Dosage: 6 CYCLES
     Route: 065
  4. IRINOTECAN [Suspect]
     Active Substance: IRINOTECAN
     Indication: Colorectal adenocarcinoma
     Dosage: UNK
     Route: 042
     Dates: start: 2014, end: 2016
  5. IRINOTECAN [Suspect]
     Active Substance: IRINOTECAN
     Indication: Colorectal cancer metastatic
  6. FLUOROURACIL [Suspect]
     Active Substance: FLUOROURACIL
     Indication: Colorectal cancer metastatic
     Dosage: 5 CYCLE
     Route: 042
     Dates: start: 2011
  7. FLUOROURACIL [Suspect]
     Active Substance: FLUOROURACIL
     Indication: Colorectal cancer
     Dosage: UNK
     Route: 042
     Dates: start: 2014, end: 201608
  8. FLUOROURACIL [Suspect]
     Active Substance: FLUOROURACIL
     Dosage: 5 CYCLES OF MFOLFOX6, POSTOPERATIVELY
     Route: 065
  9. FLUOROURACIL [Suspect]
     Active Substance: FLUOROURACIL
     Dosage: 6 CYCLES
     Route: 065
  10. FLUOROURACIL [Suspect]
     Active Substance: FLUOROURACIL
     Dosage: UNK (A TOTAL OF 25 CYCLES OF FOLFIRI (OR FUFA) PLUS CETUXIMAB)
     Route: 065
     Dates: start: 201511
  11. FLUOROURACIL [Suspect]
     Active Substance: FLUOROURACIL
     Dosage: 4 CYCLICAL
  12. LEUCOVORIN [Suspect]
     Active Substance: LEUCOVORIN
     Indication: Colorectal cancer metastatic
     Dosage: 5 CYCLE
     Route: 042
     Dates: start: 2011
  13. LEUCOVORIN [Suspect]
     Active Substance: LEUCOVORIN
     Indication: Colorectal cancer
     Dosage: 6 CYCLES
     Route: 042
  14. LEUCOVORIN [Suspect]
     Active Substance: LEUCOVORIN
     Dosage: 4 CYCLICAL
     Dates: start: 201406
  15. LEUCOVORIN CALCIUM [Suspect]
     Active Substance: LEUCOVORIN CALCIUM
     Indication: Colorectal cancer metastatic
     Dosage: UNK
     Route: 042
     Dates: start: 2014, end: 201608
  16. LEUCOVORIN CALCIUM [Suspect]
     Active Substance: LEUCOVORIN CALCIUM
     Dosage: 5 CYCLES OF MFOLFOX6, POSTOPERATIVELY
     Route: 065
  17. LEUCOVORIN CALCIUM [Suspect]
     Active Substance: LEUCOVORIN CALCIUM
     Dosage: UNK (A TOTAL OF 25 CYCLES OF FOLFIRI (OR FUFA) PLUS CETUXIMAB)
     Route: 065
     Dates: start: 2015
  18. LEUCOVORIN CALCIUM [Suspect]
     Active Substance: LEUCOVORIN CALCIUM
     Dosage: UNK
     Route: 042
     Dates: start: 2014, end: 2016
  19. LEUCOVORIN CALCIUM [Suspect]
     Active Substance: LEUCOVORIN CALCIUM
     Dosage: UNK (4 CYCLES OF FOLFIRI REGIMEN)
     Route: 065
     Dates: start: 2014, end: 2014
  20. LEUCOVORIN CALCIUM [Suspect]
     Active Substance: LEUCOVORIN CALCIUM
     Dosage: UNK (21 CYCLES OF FUFA)
     Route: 065
     Dates: start: 2014, end: 201511
  21. BEVACIZUMAB [Suspect]
     Active Substance: BEVACIZUMAB
     Indication: Colorectal cancer metastatic
     Dosage: 5 CYCLE
     Route: 042
     Dates: start: 2011
  22. FLUOROURACIL [Suspect]
     Active Substance: FLUOROURACIL
     Indication: Colorectal cancer
     Dosage: 4 CYCLICAL
     Dates: start: 201406
  23. FLUOROURACIL [Suspect]
     Active Substance: FLUOROURACIL
     Indication: Colorectal cancer metastatic
     Dosage: A TOTAL OF 25 CYCLES OF FOLFIRI (OR FUFA) PLUS CETUXIMAB
     Route: 065
     Dates: start: 2014, end: 201511
  24. FLUOROURACIL [Suspect]
     Active Substance: FLUOROURACIL
     Indication: Colorectal adenocarcinoma
  25. LEUCOVORIN [Suspect]
     Active Substance: LEUCOVORIN
     Indication: Colorectal adenocarcinoma
     Dosage: UNK
     Route: 065
  26. CETUXIMAB [Suspect]
     Active Substance: CETUXIMAB
     Indication: Colorectal adenocarcinoma
     Dosage: A TOTAL OF 25 CYCLES OF FOLFIRI (OR FUFA) PLUS CETUXIMAB
     Route: 042
     Dates: start: 2014
  27. CETUXIMAB [Suspect]
     Active Substance: CETUXIMAB
     Indication: Colorectal cancer metastatic

REACTIONS (9)
  - Colorectal cancer metastatic [Unknown]
  - Malignant neoplasm progression [Unknown]
  - Neuropathy peripheral [Unknown]
  - Neutropenia [Unknown]
  - Haematotoxicity [Recovered/Resolved]
  - Anaemia [Unknown]
  - Skin toxicity [Recovered/Resolved]
  - Cutaneous symptom [Recovered/Resolved]
  - Rash [Recovered/Resolved]

NARRATIVE: CASE EVENT DATE: 20110101
